FAERS Safety Report 8623557-3 (Version None)
Quarter: 2012Q3

REPORT INFORMATION
  Report Type: 
  Country: None (occurrence: None)
  Receive Date: 20120827
  Receipt Date: 20120718
  Transmission Date: 20120928
  Serious: No
  Sender: FDA-Public Use
  Company Number: US-MYLANLABS-2012S1014331

PATIENT
  Age: 71 Year
  Sex: Female
  Weight: 58.51 kg

DRUGS (4)
  1. SIMVASTATIN [Concomitant]
  2. PREMARIN [Concomitant]
  3. LANSOPRAZOLE [Suspect]
     Indication: HIATUS HERNIA
     Route: 048
     Dates: start: 20120301, end: 20120401
  4. ARTHROTEC [Concomitant]

REACTIONS (2)
  - HIATUS HERNIA [None]
  - DRUG INEFFECTIVE [None]
